FAERS Safety Report 19129782 (Version 1)
Quarter: 2021Q2

REPORT INFORMATION
  Report Type: Spontaneous
  Country: US (occurrence: US)
  Receive Date: 20210413
  Receipt Date: 20210413
  Transmission Date: 20210717
  Serious: No
  Sender: FDA-Public Use
  Company Number: US-TOPROL-2020000384

PATIENT
  Age: 80 Year
  Sex: Female
  Weight: 45.35 kg

DRUGS (2)
  1. TOPROL XL [Suspect]
     Active Substance: METOPROLOL SUCCINATE
     Dosage: 50 MG IN THE AM; 25 MG IN THE PM
  2. METOPROLOL SUCCINATE. [Suspect]
     Active Substance: METOPROLOL SUCCINATE
     Dosage: UNK

REACTIONS (3)
  - Product substitution issue [Recovered/Resolved]
  - Inappropriate schedule of product administration [Unknown]
  - Headache [Recovered/Resolved]
